FAERS Safety Report 21362415 (Version 1)
Quarter: 2022Q3

REPORT INFORMATION
  Report Type: Spontaneous
  Country: US (occurrence: US)
  Receive Date: 20220922
  Receipt Date: 20220922
  Transmission Date: 20221026
  Serious: Yes (Other)
  Sender: FDA-Public Use
  Company Number: US-AMGEN-USASP2022161385

PATIENT
  Sex: Female

DRUGS (6)
  1. VECTIBIX [Suspect]
     Active Substance: PANITUMUMAB
     Indication: Colon cancer
     Dosage: 469 MILLIGRAM
     Route: 042
     Dates: start: 20220705
  2. VECTIBIX [Suspect]
     Active Substance: PANITUMUMAB
     Dosage: 469 MILLIGRAM
     Route: 042
     Dates: start: 20220722
  3. VECTIBIX [Suspect]
     Active Substance: PANITUMUMAB
     Dosage: 235 MILLIGRAM
     Route: 042
     Dates: start: 20220808, end: 20220808
  4. OXALIPLATIN [Concomitant]
     Active Substance: OXALIPLATIN
     Indication: Product used for unknown indication
     Dosage: UNK
     Route: 065
  5. LEUCOVORIN [Concomitant]
     Active Substance: LEUCOVORIN
     Indication: Product used for unknown indication
     Dosage: UNK
     Route: 065
  6. FLUOROURACIL [Concomitant]
     Active Substance: FLUOROURACIL
     Indication: Product used for unknown indication
     Dosage: UNK
     Route: 065

REACTIONS (5)
  - Angina pectoris [Unknown]
  - Adverse drug reaction [Unknown]
  - Intercepted product administration error [Unknown]
  - Rash [Unknown]
  - Mucosal inflammation [Unknown]

NARRATIVE: CASE EVENT DATE: 20220101
